FAERS Safety Report 10380757 (Version 2)
Quarter: 2014Q3

REPORT INFORMATION
  Report Type: Spontaneous
  Country: DE (occurrence: DE)
  Receive Date: 20140813
  Receipt Date: 20140814
  Transmission Date: 20150326
  Serious: Yes (Disabling)
  Sender: FDA-Public Use
  Company Number: DE-ASTELLAS-2014EU010660

PATIENT
  Sex: Female

DRUGS (3)
  1. ADVAGRAF [Suspect]
     Active Substance: TACROLIMUS
     Indication: LUNG TRANSPLANT
     Dosage: 0.5/1 MG, DAILY.
     Route: 048
     Dates: start: 20130310
  2. CORTISONE [Concomitant]
     Active Substance: CORTISONE\HYDROCORTISONE
     Indication: LUNG TRANSPLANT
     Dosage: 5 MG, DAILY.
     Route: 048
     Dates: start: 200805
  3. CERTICAN [Concomitant]
     Active Substance: EVEROLIMUS
     Indication: LUNG TRANSPLANT
     Dosage: 0.25 MG, TWICE DAILY
     Route: 048

REACTIONS (2)
  - Osteonecrosis [Not Recovered/Not Resolved]
  - Off label use [Unknown]

NARRATIVE: CASE EVENT DATE: 201310
